FAERS Safety Report 13076045 (Version 1)
Quarter: 2016Q4

REPORT INFORMATION
  Report Type: Spontaneous
  Country: US (occurrence: US)
  Receive Date: 20161229
  Receipt Date: 20161229
  Transmission Date: 20170207
  Serious: No
  Sender: FDA-Public Use
  Company Number: None

PATIENT
  Age: 23 Year
  Sex: Female

DRUGS (1)
  1. LUPRON DEPOT [Suspect]
     Active Substance: LEUPROLIDE ACETATE
     Indication: SOFT TISSUE SARCOMA
     Dosage: 11.25MG Q3M IM
     Route: 030
     Dates: start: 20161121

REACTIONS (2)
  - Weight increased [None]
  - Depression [None]

NARRATIVE: CASE EVENT DATE: 20161121
